FAERS Safety Report 8690976 (Version 2)
Quarter: 2013Q4

REPORT INFORMATION
  Report Type: Spontaneous
  Country: US (occurrence: US)
  Receive Date: 20120730
  Receipt Date: 20131107
  Transmission Date: 20140711
  Serious: Yes (Life-Threatening, Hospitalization)
  Sender: FDA-Public Use
  Company Number: US-009507513-1207USA009933

PATIENT
  Age: 84 Year
  Sex: Female

DRUGS (6)
  1. ZOCOR [Suspect]
     Dosage: 80 MG, QD
     Route: 048
  2. AMLODIPINE BESYLATE [Suspect]
     Dosage: 10 MG, QD
     Route: 048
  3. ASPIRIN [Concomitant]
  4. LISINOPRIL [Concomitant]
  5. LANOXIN [Concomitant]
  6. METOPROLOL [Concomitant]

REACTIONS (7)
  - Weight decreased [Unknown]
  - Rhabdomyolysis [Unknown]
  - General physical health deterioration [Unknown]
  - Listless [Unknown]
  - Renal failure acute [Unknown]
  - Cachexia [Unknown]
  - Night sweats [Unknown]
